FAERS Safety Report 4471446-0 (Version None)
Quarter: 2004Q4

REPORT INFORMATION
  Report Type: 
  Country: None (occurrence: None)
  Receive Date: 20041012
  Receipt Date: 20041005
  Transmission Date: 20050328
  Serious: Yes (Death, Hospitalization, Other)
  Sender: FDA-Public Use
  Company Number: PHBS2004HK13464

PATIENT
  Age: 74 Year
  Sex: Male

DRUGS (4)
  1. METOPROLOL [Suspect]
     Indication: HYPERTENSION
     Dosage: 50 MG, BID
     Route: 048
  2. METOPROLOL [Suspect]
     Dosage: 75 MG, BID
     Route: 048
  3. NIFEDIPINE [Concomitant]
     Indication: HYPERTENSION
  4. PERINDOPRIL [Concomitant]

REACTIONS (10)
  - ANAEMIA [None]
  - BLOOD PRESSURE INADEQUATELY CONTROLLED [None]
  - BRAIN STEM INFARCTION [None]
  - DIABETIC RETINOPATHY [None]
  - HEADACHE [None]
  - HYPERTENSIVE ENCEPHALOPATHY [None]
  - OESOPHAGEAL POLYP [None]
  - PNEUMONIA [None]
  - SOMNOLENCE [None]
  - VISION BLURRED [None]
